FAERS Safety Report 17557575 (Version 1)
Quarter: 2020Q1

REPORT INFORMATION
  Report Type: Spontaneous
  Country: US (occurrence: US)
  Receive Date: 20200318
  Receipt Date: 20200318
  Transmission Date: 20200409
  Serious: Yes (Death)
  Sender: FDA-Public Use
  Company Number: US-ASTRAZENECA-2020SE39377

PATIENT
  Age: 121 Day
  Sex: Female

DRUGS (3)
  1. VALCYTE [Concomitant]
     Active Substance: VALGANCICLOVIR HYDROCHLORIDE
  2. POLYGYLCOL [Concomitant]
  3. SYNAGIS [Suspect]
     Active Substance: PALIVIZUMAB
     Indication: PREMATURE LABOUR
     Route: 030
     Dates: start: 20191115

REACTIONS (1)
  - Death [Fatal]

NARRATIVE: CASE EVENT DATE: 20191227
